FAERS Safety Report 14408864 (Version 3)
Quarter: 2019Q3

REPORT INFORMATION
  Report Type: Report from Study
  Country: FR (occurrence: FR)
  Receive Date: 20180119
  Receipt Date: 20190709
  Transmission Date: 20191004
  Serious: Yes (Other)
  Sender: FDA-Public Use
  Company Number: FR-ROCHE-2053915

PATIENT
  Age: 65 Year
  Sex: Female

DRUGS (2)
  1. BLINDED OLAPARIB [Suspect]
     Active Substance: OLAPARIB
     Indication: MALIGNANT PERITONEAL NEOPLASM
     Dosage: DATE OF LAST DOSE ADMINISTRED PRIOR TO SAE : 04/JAN/2018
     Route: 065
     Dates: start: 20170623, end: 20180109
  2. BEVACIZUMAB. [Suspect]
     Active Substance: BEVACIZUMAB
     Indication: MALIGNANT PERITONEAL NEOPLASM
     Dosage: DATE OF LAST DOSE ADMINISTRED PRIOR TO SAE : 11/DEC/2017
     Route: 065
     Dates: start: 20170623, end: 20180109

REACTIONS (1)
  - Myelodysplastic syndrome [Recovered/Resolved]

NARRATIVE: CASE EVENT DATE: 20180109
